FAERS Safety Report 20177256 (Version 3)
Quarter: 2022Q1

REPORT INFORMATION
  Report Type: Spontaneous
  Country: US (occurrence: US)
  Receive Date: 20211213
  Receipt Date: 20220113
  Transmission Date: 20220423
  Serious: Yes (Hospitalization)
  Sender: FDA-Public Use
  Company Number: US-PFIZER INC-202101696597

PATIENT
  Age: 98 Year
  Sex: Male
  Weight: 63.5 kg

DRUGS (1)
  1. RETACRIT [Suspect]
     Active Substance: EPOETIN ALFA-EPBX
     Indication: Anaemia
     Dosage: 20,000 UNITS TOTAL, GETS TWO 10,000 UNITS ONCE A WEEK)

REACTIONS (1)
  - Infection [Unknown]
